FAERS Safety Report 5009443-9 (Version None)
Quarter: 2006Q2

REPORT INFORMATION
  Report Type: 
  Country: None (occurrence: None)
  Receive Date: 20060522
  Receipt Date: 20060509
  Transmission Date: 20061013
  Serious: Yes (Hospitalization, Disabling, Other)
  Sender: FDA-Public Use
  Company Number: 2006063072

PATIENT
  Age: 51 Year
  Sex: Female
  Weight: 108.8633 kg

DRUGS (1)
  1. BEXTRA [Suspect]
     Indication: ILL-DEFINED DISORDER
     Dosage: 20 MG (20 MG, 1 IN 1 D)
     Dates: start: 20030717, end: 20030816

REACTIONS (5)
  - ANGINA PECTORIS [None]
  - CEREBROVASCULAR ACCIDENT [None]
  - IMPAIRED WORK ABILITY [None]
  - MYOCARDIAL INFARCTION [None]
  - PAIN [None]
